FAERS Safety Report 17938376 (Version 1)
Quarter: 2020Q2

REPORT INFORMATION
  Report Type: Spontaneous
  Country: US (occurrence: US)
  Receive Date: 20200625
  Receipt Date: 20200625
  Transmission Date: 20200714
  Serious: No
  Sender: FDA-Public Use
  Company Number: US-GLAXOSMITHKLINE-US2020105759

PATIENT
  Age: 12 Year
  Sex: Male

DRUGS (1)
  1. ADVAIR DISKUS [Suspect]
     Active Substance: FLUTICASONE PROPIONATE\SALMETEROL XINAFOATE
     Indication: ASTHMA
     Dosage: 1 PUFF(S), BID, 100/50 MCG
     Route: 055

REACTIONS (5)
  - Hypersensitivity [Unknown]
  - Cough [Unknown]
  - Chest discomfort [Unknown]
  - Asthma [Unknown]
  - Throat clearing [Unknown]

NARRATIVE: CASE EVENT DATE: 20200617
